FAERS Safety Report 7187809-9 (Version None)
Quarter: 2010Q4

REPORT INFORMATION
  Report Type: 
  Country: None (occurrence: None)
  Receive Date: 20101222
  Receipt Date: 20100708
  Transmission Date: 20110411
  Serious: No
  Sender: FDA-Public Use
  Company Number: US-AMGEN-KDL423000

PATIENT

DRUGS (11)
  1. ENBREL [Suspect]
     Indication: PRODUCT USED FOR UNKNOWN INDICATION
     Dosage: 50 MG, QWK
     Route: 058
  2. CELECOXIB [Concomitant]
  3. DULOXETIME HYDROCHLORIDE [Concomitant]
     Dosage: 60 MG, UNK
  4. AMLODIPINE [Concomitant]
     Dosage: 10 MG, UNK
  5. HYDROCODONE BITARTRATE + IBUPROFEN [Concomitant]
     Dosage: UNK UNK, UNK
  6. SIMVASTATIN [Concomitant]
     Dosage: 40 MG, UNK
  7. CARVEDILOL [Concomitant]
     Dosage: 25 MG, UNK
  8. DIAZEPAM [Concomitant]
     Dosage: 10 MG, UNK
  9. ASPIRIN [Concomitant]
     Dosage: 81 MG, UNK
  10. POTASSIUM [Concomitant]
     Dosage: 99 MG, UNK
  11. ERGOCALCIFEROL [Concomitant]
     Dosage: 1000 IU, UNK

REACTIONS (3)
  - FUNGAL INFECTION [None]
  - PSORIASIS [None]
  - THERAPEUTIC RESPONSE DECREASED [None]
